FAERS Safety Report 5824215-0 (Version None)
Quarter: 2008Q3

REPORT INFORMATION
  Report Type: 
  Country: None (occurrence: None)
  Receive Date: 20080718
  Receipt Date: 20080520
  Transmission Date: 20090109
  Serious: Yes (Other)
  Sender: FDA-Public Use
  Company Number: US-WYE-H04192308

PATIENT
  Age: 42 Year
  Sex: Male
  Weight: 65.83 kg

DRUGS (1)
  1. ADVIL PM [Suspect]
     Indication: INSOMNIA
     Dosage: 2 CAPLETS ONE TIME, ORAL
     Route: 048
     Dates: start: 20080519, end: 20080519

REACTIONS (3)
  - ABDOMINAL PAIN UPPER [None]
  - FEELING JITTERY [None]
  - NERVOUSNESS [None]
